FAERS Safety Report 24766487 (Version 1)
Quarter: 2024Q4

REPORT INFORMATION
  Report Type: Spontaneous
  Country: US (occurrence: None)
  Receive Date: 20241220
  Receipt Date: 20241220
  Transmission Date: 20250114
  Serious: Yes (Life-Threatening, Hospitalization, Disabling)
  Sender: Public
  Company Number: None

PATIENT
  Age: 35 Year
  Sex: Female
  Weight: 58.5 kg

DRUGS (1)
  1. MOXIFLOXACIN [Suspect]
     Active Substance: MOXIFLOXACIN
     Indication: Bacterial infection
     Dosage: FREQUENCY : DAILY;?
     Route: 048
     Dates: start: 20241119, end: 20241126

REACTIONS (1)
  - Liver injury [None]

NARRATIVE: CASE EVENT DATE: 20241213
